FAERS Safety Report 9052905 (Version 1)
Quarter: 2013Q1

REPORT INFORMATION
  Report Type: Spontaneous
  Country: CA (occurrence: CA)
  Receive Date: 20130207
  Receipt Date: 20130207
  Transmission Date: 20140127
  Serious: Yes (Hospitalization)
  Sender: FDA-Public Use
  Company Number: PHHY2012CA053803

PATIENT
  Age: 63 Year
  Sex: Female

DRUGS (9)
  1. HYDRALAZINE [Suspect]
  2. HEPARIN [Concomitant]
     Indication: DEEP VEIN THROMBOSIS
  3. HYDROMORPHONE [Concomitant]
  4. FENTANYL [Concomitant]
  5. DEXAMETHASONE [Concomitant]
  6. PHENYTOIN [Concomitant]
  7. METHYLPHENIDATE [Concomitant]
  8. AMLODIPINE [Concomitant]
  9. FLUOXETINE [Concomitant]

REACTIONS (3)
  - Delirium [Unknown]
  - Disturbance in attention [Unknown]
  - Thought blocking [Unknown]
